FAERS Safety Report 9970449 (Version 1)
Quarter: 2014Q1

REPORT INFORMATION
  Report Type: Spontaneous
  Country: US (occurrence: None)
  Receive Date: 20140128
  Receipt Date: 20140128
  Transmission Date: 20141002
  Serious: Yes (Hospitalization)
  Sender: FDA-Public Use
  Company Number: A-NJ2012-75569

PATIENT
  Age: 65 Year
  Sex: Female

DRUGS (14)
  1. TRACLEER [Suspect]
     Indication: PULMONARY ARTERIAL HYPERTENSION
     Route: 048
     Dates: start: 2012, end: 201208
  2. LETAIRIS (AMBRISENTAN) (TABLETS) [Concomitant]
  3. ALLOPURINOL (ALLOPURINOL) [Concomitant]
  4. ZYRTEC (CETIRIZINE HYDROCHLORIDE) [Concomitant]
  5. SINGULAR (MONTELUKAST SODIUM) [Concomitant]
  6. BETAPACE (SOTALOL HYDROCHLORIDE) [Concomitant]
  7. HYDROCODONE (HYDROCODONE) [Concomitant]
  8. XOPENEX (LEVOSALBUTAMOL HYDROCHLORIDE) [Concomitant]
  9. FISH OIL (FISH OIL) [Concomitant]
  10. VITAMIN D NOS (VITAMIN D NOS) [Concomitant]
  11. CYMBALTA [Concomitant]
  12. VICTOZA (LIRAGLUTIDE) [Concomitant]
  13. LANTUS (INSULIN GLARGINE) [Concomitant]
  14. ADVAIR (FLUTICASONE PROPIONATE, SALMETEROL XINAFOATE) [Concomitant]

REACTIONS (10)
  - Pneumonia [None]
  - Nasopharyngitis [None]
  - Nasal congestion [None]
  - No therapeutic response [None]
  - Oedema peripheral [None]
  - Productive cough [None]
  - Haemoptysis [None]
  - Increased upper airway secretion [None]
  - Headache [None]
  - Weight increased [None]
